FAERS Safety Report 16200289 (Version 3)
Quarter: 2022Q2

REPORT INFORMATION
  Report Type: Other
  Country: CA (occurrence: CA)
  Receive Date: 20190416
  Receipt Date: 20220528
  Transmission Date: 20220720
  Serious: Yes (Other)
  Sender: FDA-Public Use
  Company Number: CA-002147023-PHHY2018CA090623

PATIENT
  Age: 40 Year
  Sex: Female
  Weight: 58 kg

DRUGS (10)
  1. XOLAIR [Suspect]
     Active Substance: OMALIZUMAB
     Indication: Chronic spontaneous urticaria
     Route: 058
     Dates: start: 20180830
  2. XOLAIR [Suspect]
     Active Substance: OMALIZUMAB
     Indication: Asthma
     Route: 058
     Dates: start: 20181227
  3. XOLAIR [Suspect]
     Active Substance: OMALIZUMAB
     Route: 058
     Dates: start: 20190320
  4. XOLAIR [Suspect]
     Active Substance: OMALIZUMAB
     Route: 058
  5. XOLAIR [Suspect]
     Active Substance: OMALIZUMAB
     Route: 058
     Dates: start: 20180831
  6. RUPATADINE FUMARATE [Concomitant]
     Active Substance: RUPATADINE FUMARATE
     Indication: Product used for unknown indication
     Dosage: 4 DF, QD
     Route: 048
     Dates: start: 20181231
  7. CETIRIZINE HYDROCHLORIDE [Concomitant]
     Active Substance: CETIRIZINE HYDROCHLORIDE
     Indication: Chronic spontaneous urticaria
     Dosage: UNK UNK, BID
     Route: 048
     Dates: start: 201802
  8. ZANTAC [Concomitant]
     Active Substance: RANITIDINE HYDROCHLORIDE
     Indication: Chronic spontaneous urticaria
     Dosage: UNK UNK, BID
     Route: 048
     Dates: start: 201803
  9. SINGULAIR [Concomitant]
     Active Substance: MONTELUKAST SODIUM
     Indication: Chronic spontaneous urticaria
     Dosage: UNK UNK, QD
     Route: 048
     Dates: start: 201803
  10. PREDNISONE [Concomitant]
     Active Substance: PREDNISONE
     Indication: Chronic spontaneous urticaria
     Route: 048
     Dates: start: 201804

REACTIONS (22)
  - Loss of consciousness [Unknown]
  - Pruritus [Unknown]
  - Syncope [Unknown]
  - Restlessness [Unknown]
  - Insomnia [Unknown]
  - Lip swelling [Unknown]
  - Palpitations [Unknown]
  - Anxiety [Unknown]
  - Hypotension [Unknown]
  - Feeling abnormal [Unknown]
  - Malaise [Unknown]
  - Eye swelling [Recovered/Resolved]
  - Stress [Unknown]
  - Asthenia [Recovered/Resolved]
  - Headache [Not Recovered/Not Resolved]
  - Urticaria [Recovered/Resolved]
  - Swelling [Unknown]
  - Injection site bruising [Unknown]
  - Asthma [Unknown]
  - Chronic spontaneous urticaria [Unknown]
  - Off label use [Unknown]
  - Periorbital swelling [Recovered/Resolved]

NARRATIVE: CASE EVENT DATE: 20180830
